FAERS Safety Report 10250361 (Version 1)
Quarter: 2014Q2

REPORT INFORMATION
  Report Type: Spontaneous
  Country: JP (occurrence: JP)
  Receive Date: 20140620
  Receipt Date: 20140620
  Transmission Date: 20141212
  Serious: Yes (Other)
  Sender: FDA-Public Use
  Company Number: JP-BAYER-2014-089908

PATIENT
  Age: 73 Year
  Sex: Male

DRUGS (3)
  1. CIPROFLOXACIN BETAIN [Suspect]
     Indication: OSTEOMYELITIS
     Dosage: 0.3 G, BID WITH 2-H INFUSION
     Route: 013
  2. PIPERACILLIN [Concomitant]
     Indication: OSTEOMYELITIS
     Dosage: 3 G, CONT
     Route: 013
  3. HEPARIN [Concomitant]
     Indication: ANTICOAGULANT THERAPY
     Dosage: DAILY DOSE 5000 U

REACTIONS (3)
  - Carotid artery aneurysm [Recovered/Resolved]
  - Off label use [None]
  - Device occlusion [Recovered/Resolved]
